FAERS Safety Report 5192031-1 (Version None)
Quarter: 2006Q4

REPORT INFORMATION
  Report Type: 
  Country: None (occurrence: None)
  Receive Date: 20061220
  Receipt Date: 20061220
  Transmission Date: 20070319
  Serious: Yes (Hospitalization)
  Sender: FDA-Public Use
  Company Number: None

PATIENT
  Age: 52 Year
  Sex: Male
  Weight: 111.1313 kg

DRUGS (14)
  1. ENOXAPARIN SODIUM [Suspect]
     Indication: DEEP VEIN THROMBOSIS
     Dosage: 160 MG SQ DAILY
     Route: 058
     Dates: start: 20060811, end: 20060815
  2. ENOXAPARIN SODIUM [Suspect]
     Indication: PULMONARY EMBOLISM
     Dosage: 160 MG SQ DAILY
     Route: 058
     Dates: start: 20060811, end: 20060815
  3. WARFARIN SODIUM [Suspect]
     Indication: DEEP VEIN THROMBOSIS
     Dosage: 10 MG PO DAILY
     Route: 048
     Dates: start: 20060810, end: 20060815
  4. WARFARIN SODIUM [Suspect]
     Indication: PULMONARY EMBOLISM
     Dosage: 10 MG PO DAILY
     Route: 048
     Dates: start: 20060810, end: 20060815
  5. PLENDIL [Concomitant]
  6. METOPROLOL SUCCINATE [Concomitant]
  7. COZAAR [Concomitant]
  8. AMARYL [Concomitant]
  9. LIPITOR [Concomitant]
  10. HYDROCHLOROTHIAZIDE [Concomitant]
  11. POTASSIUM CHLORIDE [Concomitant]
  12. PERCOCET [Concomitant]
  13. LOVENOX [Concomitant]
  14. WARFARIN SODIUM [Concomitant]

REACTIONS (3)
  - DEEP VEIN THROMBOSIS [None]
  - HAEMATURIA [None]
  - PULMONARY EMBOLISM [None]
